FAERS Safety Report 10687989 (Version 1)
Quarter: 2014Q4

REPORT INFORMATION
  Report Type: Spontaneous
  Country: US (occurrence: None)
  Receive Date: 20141231
  Receipt Date: 20141231
  Transmission Date: 20150529
  Serious: Yes (Life-Threatening)
  Sender: FDA-Public Use
  Company Number: None

PATIENT
  Age: 53 Year
  Sex: Male
  Weight: 98.3 kg

DRUGS (1)
  1. METOPROLOL [Suspect]
     Active Substance: METOPROLOL
     Indication: HYPERTENSION
     Route: 048
     Dates: start: 20141013, end: 20141107

REACTIONS (4)
  - Bradycardia [None]
  - Cardiac arrest [None]
  - Unresponsive to stimuli [None]
  - Pulse absent [None]

NARRATIVE: CASE EVENT DATE: 20141107
